FAERS Safety Report 11267695 (Version 2)
Quarter: 2018Q1

REPORT INFORMATION
  Report Type: Spontaneous
  Country: US (occurrence: US)
  Receive Date: 20150713
  Receipt Date: 20180111
  Transmission Date: 20180508
  Serious: No
  Sender: FDA-Public Use
  Company Number: US-009507513-1506USA011379

PATIENT
  Sex: Male

DRUGS (5)
  1. PREGNYL [Suspect]
     Active Substance: CHORIOGONADOTROPIN ALFA
     Indication: SPERMATOGENESIS ABNORMAL
     Dosage: 3000 IU, QOD
     Route: 058
  2. TAMOXIFEN [Concomitant]
     Active Substance: TAMOXIFEN
     Indication: BLOOD FOLLICLE STIMULATING HORMONE ABNORMAL
  3. ANASTROZOLE. [Concomitant]
     Active Substance: ANASTROZOLE
     Indication: BLOOD FOLLICLE STIMULATING HORMONE ABNORMAL
  4. CLOMIPHENE CITRATE. [Concomitant]
     Active Substance: CLOMIPHENE CITRATE
     Indication: BLOOD FOLLICLE STIMULATING HORMONE ABNORMAL
  5. FOLLITROPIN ALFA [Concomitant]
     Active Substance: FOLLITROPIN
     Indication: BLOOD FOLLICLE STIMULATING HORMONE ABNORMAL

REACTIONS (2)
  - Off label use [Unknown]
  - Exposure via father [Unknown]
